FAERS Safety Report 15417639 (Version 2)
Quarter: 2018Q4

REPORT INFORMATION
  Report Type: Spontaneous
  Country: AU (occurrence: AU)
  Receive Date: 20180924
  Receipt Date: 20181004
  Transmission Date: 20190204
  Serious: Yes (Hospitalization, Other)
  Sender: FDA-Public Use
  Company Number: AU-AMGEN-AUSSP2018072999

PATIENT
  Age: 61 Year
  Sex: Female

DRUGS (5)
  1. BLINCYTO [Suspect]
     Active Substance: BLINATUMOMAB
     Dosage: UNK
     Route: 065
     Dates: start: 20180528, end: 2018
  2. BLINCYTO [Suspect]
     Active Substance: BLINATUMOMAB
     Dosage: 9 MCG, QD (FOR 2 DAYS)
     Route: 065
     Dates: start: 201806, end: 201806
  3. BLINCYTO [Suspect]
     Active Substance: BLINATUMOMAB
     Dosage: 12 MCG, QD
     Route: 065
     Dates: start: 20180910
  4. BLINCYTO [Suspect]
     Active Substance: BLINATUMOMAB
     Dosage: 12 MCG, QD (FOR 3 DAYS)
     Route: 065
     Dates: start: 201806
  5. BLINCYTO [Suspect]
     Active Substance: BLINATUMOMAB
     Indication: PRODUCT USED FOR UNKNOWN INDICATION
     Dosage: 9 MCG, UNK
     Route: 065
     Dates: start: 20180524, end: 201805

REACTIONS (7)
  - Pyrexia [Recovered/Resolved]
  - Muscular weakness [Unknown]
  - Aspergillus infection [Unknown]
  - Gamma-glutamyltransferase increased [Unknown]
  - Blood alkaline phosphatase increased [Unknown]
  - Aphasia [Unknown]
  - Hypertension [Recovered/Resolved]

NARRATIVE: CASE EVENT DATE: 201805
